FAERS Safety Report 9666240 (Version 1)
Quarter: 2013Q4

REPORT INFORMATION
  Report Type: Spontaneous
  Country: CA (occurrence: None)
  Receive Date: 20131031
  Receipt Date: 20131031
  Transmission Date: 20140711
  Serious: Yes (Death)
  Sender: FDA-Public Use
  Company Number: 1713747-2013-99968

PATIENT
  Sex: 0

DRUGS (2)
  1. SODIUM CHLORIDE [Suspect]
     Indication: HAEMODIALYSIS
  2. FRESENIUS K @HOME [Concomitant]

REACTIONS (1)
  - Device issue [None]
